FAERS Safety Report 9697077 (Version 3)
Quarter: 2013Q4

REPORT INFORMATION
  Report Type: Spontaneous
  Country: IT (occurrence: IT)
  Receive Date: 20131120
  Receipt Date: 20131223
  Transmission Date: 20140711
  Serious: Yes (Other)
  Sender: FDA-Public Use
  Company Number: IT-ROCHE-1303759

PATIENT
  Age: 4 Year
  Sex: Female

DRUGS (3)
  1. BACTRIM [Suspect]
     Indication: ANTIBIOTIC PROPHYLAXIS
     Route: 065
     Dates: start: 20131029, end: 20131031
  2. CEFTRIAXONE [Suspect]
     Indication: PYREXIA
     Route: 042
  3. AMOXICILLIN/CLAVULANIC ACID [Suspect]
     Indication: PYREXIA
     Route: 048

REACTIONS (3)
  - Abdominal pain [Recovering/Resolving]
  - Angioedema [Recovering/Resolving]
  - Dysentery [Recovering/Resolving]
